FAERS Safety Report 13628675 (Version 2)
Quarter: 2017Q3

REPORT INFORMATION
  Report Type: Spontaneous
  Country: AR (occurrence: AR)
  Receive Date: 20170608
  Receipt Date: 20170821
  Transmission Date: 20171127
  Serious: Yes (Hospitalization)
  Sender: FDA-Public Use
  Company Number: AR-BIOMARINAP-AR-2017-114223

PATIENT
  Sex: Female

DRUGS (1)
  1. NAGLAZYME [Suspect]
     Active Substance: GALSULFASE
     Indication: MUCOPOLYSACCHARIDOSIS VI
     Route: 042

REACTIONS (5)
  - Dyspnoea [Unknown]
  - Cyanosis [Unknown]
  - Drug administration error [Unknown]
  - Hypersensitivity [Unknown]
  - Syncope [Unknown]

NARRATIVE: CASE EVENT DATE: 20170601
